FAERS Safety Report 6165156-1 (Version None)
Quarter: 2009Q2

REPORT INFORMATION
  Report Type: 
  Country: None (occurrence: None)
  Receive Date: 20090421
  Receipt Date: 20090421
  Transmission Date: 20091009
  Serious: Yes (Other)
  Sender: FDA-Public Use
  Company Number: None

PATIENT
  Age: 34 Year
  Sex: Female
  Weight: 105.2345 kg

DRUGS (4)
  1. SINGULAIR [Suspect]
     Indication: ASTHMA
     Dates: start: 20081215, end: 20090321
  2. SINGULAIR [Suspect]
     Indication: MULTIPLE ALLERGIES
     Dates: start: 20081215, end: 20090321
  3. SINGULAIR [Suspect]
     Indication: ASTHMA
     Dates: start: 20090414, end: 20090418
  4. SINGULAIR [Suspect]
     Indication: MULTIPLE ALLERGIES
     Dates: start: 20090414, end: 20090418

REACTIONS (5)
  - APATHY [None]
  - CRYING [None]
  - DEPRESSION [None]
  - MOOD SWINGS [None]
  - SUICIDAL IDEATION [None]
